FAERS Safety Report 8624559-3 (Version None)
Quarter: 2012Q3

REPORT INFORMATION
  Report Type: 
  Country: None (occurrence: None)
  Receive Date: 20120827
  Receipt Date: 20120817
  Transmission Date: 20120928
  Serious: Yes (Other)
  Sender: FDA-Public Use
  Company Number: US-ASTRAZENECA-2012SE57900

PATIENT
  Age: 44 Year
  Sex: Male

DRUGS (5)
  1. NEXIUM [Suspect]
     Route: 048
  2. LEVAQUIN [Concomitant]
  3. SEROQUEL XR [Suspect]
     Route: 048
  4. ARMODAFINIL [Concomitant]
  5. ZITHROMAX [Concomitant]

REACTIONS (9)
  - FALL [None]
  - ADVERSE EVENT [None]
  - RIB FRACTURE [None]
  - MUCOSAL ULCERATION [None]
  - DEMENTIA ALZHEIMER'S TYPE [None]
  - PROSTATIC DISORDER [None]
  - ACCIDENT [None]
  - BIPOLAR DISORDER [None]
  - SPINAL FRACTURE [None]
